FAERS Safety Report 9229983 (Version 2)
Quarter: 2013Q2

REPORT INFORMATION
  Report Type: Spontaneous
  Country: JP (occurrence: JP)
  Receive Date: 20130415
  Receipt Date: 20130423
  Transmission Date: 20140414
  Serious: Yes (Other)
  Sender: FDA-Public Use
  Company Number: JP-JNJFOC-20130403497

PATIENT
  Age: 78 Year
  Sex: Male

DRUGS (2)
  1. RISPERDAL [Suspect]
     Indication: SCHIZOPHRENIA
     Route: 048
  2. DEPAKENE-R [Concomitant]
     Indication: MANIA
     Route: 048

REACTIONS (2)
  - Blood uric acid increased [Recovering/Resolving]
  - Glycosylated haemoglobin increased [Recovering/Resolving]
